FAERS Safety Report 5855598-3 (Version None)
Quarter: 2008Q3

REPORT INFORMATION
  Report Type: 
  Country: None (occurrence: None)
  Receive Date: 20080821
  Receipt Date: 20080804
  Transmission Date: 20090109
  Serious: Yes (Other)
  Sender: FDA-Public Use
  Company Number: PAR_02289_2008

PATIENT

DRUGS (1)
  1. MEGACE ES (NOT SPECIFIED) [Suspect]
     Indication: DECREASED APPETITE
     Dosage: 5 ML BID ORAL
     Route: 048

REACTIONS (2)
  - DEHYDRATION [None]
  - INCORRECT DOSE ADMINISTERED [None]
